FAERS Safety Report 26037668 (Version 3)
Quarter: 2025Q4

REPORT INFORMATION
  Report Type: Report from Study
  Country: US (occurrence: US)
  Receive Date: 20251112
  Receipt Date: 20251218
  Transmission Date: 20260117
  Serious: Yes (Hospitalization, Other)
  Sender: ABBVIE
  Company Number: US-ABBVIE-6526550

PATIENT
  Age: 72 Year
  Sex: Female
  Weight: 48.987 kg

DRUGS (4)
  1. VENCLEXTA [Suspect]
     Active Substance: VENETOCLAX
     Indication: Acute myeloid leukaemia
     Dosage: DISCONTINUED DATE-2025?DOSE - 100MG TABLET PO FOR 21 DAYS ON, THEN 7 DAYS OFF
     Route: 048
     Dates: start: 202509
  2. DOXORUBICIN [Concomitant]
     Active Substance: DOXORUBICIN
     Indication: Product used for unknown indication
  3. VYXEOS [Concomitant]
     Active Substance: CYTARABINE\DAUNORUBICIN
     Indication: Chemotherapy
  4. CYTARABINE [Concomitant]
     Active Substance: CYTARABINE
     Indication: Chemotherapy

REACTIONS (5)
  - Pyrexia [Recovered/Resolved]
  - Injury [Unknown]
  - Staphylococcal infection [Recovered/Resolved]
  - Pneumonia fungal [Not Recovered/Not Resolved]
  - Accident [Unknown]

NARRATIVE: CASE EVENT DATE: 20251001
